FAERS Safety Report 6588069-X (Version None)
Quarter: 2010Q1

REPORT INFORMATION
  Report Type: 
  Country: None (occurrence: None)
  Receive Date: 20100218
  Receipt Date: 20100204
  Transmission Date: 20100710
  Serious: Yes (Other)
  Sender: FDA-Public Use
  Company Number: GB-AMGEN-US392592

PATIENT
  Sex: Male

DRUGS (3)
  1. ENBREL [Suspect]
     Indication: DRUG USE FOR UNKNOWN INDICATION
     Dosage: UNKNOWN
  2. METHOTREXATE [Suspect]
     Dosage: UNKNOWN
  3. WARFARIN SODIUM [Concomitant]
     Dosage: UNKNOWN

REACTIONS (3)
  - PNEUMOTHORAX [None]
  - POST PROCEDURAL COMPLICATION [None]
  - THROMBOSIS [None]
